FAERS Safety Report 11157062 (Version 1)
Quarter: 2015Q2

REPORT INFORMATION
  Report Type: Spontaneous
  Country: PL (occurrence: PL)
  Receive Date: 20150602
  Receipt Date: 20150602
  Transmission Date: 20150821
  Serious: Yes (Hospitalization)
  Sender: FDA-Public Use
  Company Number: PL-TEVA-566230ISR

PATIENT
  Age: 66 Year
  Sex: Female
  Weight: 74 kg

DRUGS (2)
  1. ETOPOSID [Suspect]
     Active Substance: ETOPOSIDE
     Dosage: 175
     Route: 042
     Dates: start: 20140414, end: 20140416
  2. DDP [Suspect]
     Active Substance: CISPLATIN
     Indication: MALIGNANT RESPIRATORY TRACT NEOPLASM
     Dosage: 52.5
     Route: 042
     Dates: start: 20140414, end: 20140416

REACTIONS (3)
  - Neutropenia [Recovering/Resolving]
  - Electrolyte imbalance [Recovering/Resolving]
  - Asthenia [Recovering/Resolving]

NARRATIVE: CASE EVENT DATE: 20140424
